FAERS Safety Report 23887504 (Version 1)
Quarter: 2024Q2

REPORT INFORMATION
  Report Type: Report from Study
  Country: US (occurrence: US)
  Receive Date: 20240523
  Receipt Date: 20240523
  Transmission Date: 20240715
  Serious: Yes (Other)
  Sender: FDA-Public Use
  Company Number: US-ARGENX-2024-ARGX-US003366

PATIENT

DRUGS (1)
  1. VYVGART HYTRULO [Suspect]
     Active Substance: EFGARTIGIMOD ALFA\HYALURONIDASE-QVFC
     Indication: Product used for unknown indication
     Route: 058

REACTIONS (4)
  - Choking [Unknown]
  - Muscular weakness [Unknown]
  - Tooth loss [Unknown]
  - Inappropriate schedule of product administration [Unknown]
